FAERS Safety Report 10202924 (Version 1)
Quarter: 2014Q2

REPORT INFORMATION
  Report Type: Spontaneous
  Country: US (occurrence: US)
  Receive Date: 20140522
  Receipt Date: 20140522
  Transmission Date: 20141212
  Serious: No
  Sender: FDA-Public Use
  Company Number: US-SA-2014SA046180

PATIENT
  Age: 60 Year
  Sex: Male
  Weight: 131 kg

DRUGS (3)
  1. LANTUS SOLOSTAR [Suspect]
     Indication: TYPE 2 DIABETES MELLITUS
     Dosage: TAKEN FROM: EIGHT YEARS AGO DOSE:55 UNIT(S)
     Route: 065
     Dates: start: 20020310
  2. LANTUS SOLOSTAR [Suspect]
     Indication: TYPE 2 DIABETES MELLITUS
     Dosage: TAKEN FROM: EIGHT YEARS AGO DOSE:55 UNIT(S)
     Route: 065
  3. SOLOSTAR [Concomitant]

REACTIONS (1)
  - Nasopharyngitis [Unknown]
